FAERS Safety Report 7547004-8 (Version None)
Quarter: 2011Q2

REPORT INFORMATION
  Report Type: 
  Country: None (occurrence: None)
  Receive Date: 20110607
  Receipt Date: 20110601
  Transmission Date: 20111010
  Serious: Yes (Hospitalization, Other)
  Sender: FDA-Public Use
  Company Number: 2010SP016190

PATIENT
  Age: 36 Year
  Sex: Female
  Weight: 112.9457 kg

DRUGS (4)
  1. NUVARING [Suspect]
     Indication: CONTRACEPTION
     Dates: start: 20080201, end: 20080318
  2. NUVARING [Suspect]
     Indication: CONTRACEPTION
     Dates: start: 20060101
  3. NUVARING [Suspect]
     Indication: CONTRACEPTION
     Dates: start: 20040101
  4. NUVARING [Suspect]
     Indication: CONTRACEPTION
     Dates: start: 20050823

REACTIONS (11)
  - CERVICAL DYSPLASIA [None]
  - PULMONARY EMBOLISM [None]
  - SYSTEMIC LUPUS ERYTHEMATOSUS [None]
  - HEART RATE IRREGULAR [None]
  - ABORTION COMPLETE [None]
  - HYPERCOAGULATION [None]
  - PALPITATIONS [None]
  - ABORTION SPONTANEOUS [None]
  - PAPILLOMA VIRAL INFECTION [None]
  - DEEP VEIN THROMBOSIS [None]
  - ABORTION INCOMPLETE [None]
